FAERS Safety Report 9090794 (Version 1)
Quarter: 2013Q1

REPORT INFORMATION
  Report Type: Report from Study
  Country: US (occurrence: US)
  Receive Date: 20130130
  Receipt Date: 20130130
  Transmission Date: 20140127
  Serious: Yes (Hospitalization, Other)
  Sender: FDA-Public Use
  Company Number: US-ABBOTT-12P-163-0978833-00

PATIENT
  Age: 81 Year
  Sex: Female
  Weight: 55.84 kg

DRUGS (12)
  1. HUMIRA [Suspect]
     Indication: PSORIATIC ARTHROPATHY
     Dosage: FOR 1.5 YEARS
     Dates: start: 2010, end: 20120905
  2. UNKNOWN MEDICATION [Concomitant]
     Indication: HYPERTENSION
  3. UNKNOWN MEDICATION [Concomitant]
     Indication: BLOOD CHOLESTEROL INCREASED
  4. PLAQUENIL [Concomitant]
     Indication: PSORIATIC ARTHROPATHY
  5. SYNTHROID [Concomitant]
     Indication: HYPOTHYROIDISM
  6. NORCO [Concomitant]
     Indication: PAIN
  7. GABAPENTIN [Concomitant]
     Indication: FIBROMYALGIA
  8. UNKNOWN VITAMINS [Concomitant]
     Indication: VITAMIN SUPPLEMENTATION
  9. ZOCOR [Concomitant]
     Indication: BLOOD CHOLESTEROL INCREASED
  10. TRICOR [Concomitant]
     Indication: BLOOD CHOLESTEROL INCREASED
  11. IMIPRAMINE [Concomitant]
     Indication: FIBROMYALGIA
  12. OLANZAPINE [Concomitant]
     Indication: INSOMNIA

REACTIONS (2)
  - Cardiac failure congestive [Not Recovered/Not Resolved]
  - Dyspnoea [Recovered/Resolved]
